FAERS Safety Report 21561788 (Version 2)
Quarter: 2022Q4

REPORT INFORMATION
  Report Type: Spontaneous
  Country: GB (occurrence: NO)
  Receive Date: 20221107
  Receipt Date: 20221110
  Transmission Date: 20230112
  Serious: Yes (Other)
  Sender: FDA-Public Use
  Company Number: NO-CNX Therapeutics Ltd.-2022CXS001216

PATIENT
  Age: 3 Decade
  Sex: Female

DRUGS (16)
  1. LATUDA [Suspect]
     Active Substance: LURASIDONE HYDROCHLORIDE
     Indication: Psychotic disorder
     Route: 048
  2. LATUDA [Suspect]
     Active Substance: LURASIDONE HYDROCHLORIDE
     Route: 048
  3. CHLORPROTHIXENE [Suspect]
     Active Substance: CHLORPROTHIXENE
     Indication: Psychotic disorder
     Dosage: 15-25 MG, A MAXIMUM OF 100 MG PER DAY
     Route: 048
  4. CHLORPROTHIXENE [Suspect]
     Active Substance: CHLORPROTHIXENE
     Indication: Oculogyric crisis
  5. ZYPREXA [Concomitant]
     Active Substance: OLANZAPINE
     Indication: Psychotic disorder
     Dosage: UNK
     Route: 065
  6. ARIPIPRAZOLE [Concomitant]
     Active Substance: ARIPIPRAZOLE
     Indication: Product used for unknown indication
     Dosage: UNK
     Route: 065
  7. AMISULPRIDE [Concomitant]
     Active Substance: AMISULPRIDE
     Indication: Psychotic disorder
     Dosage: 400 MG, UNK
     Route: 065
  8. AMISULPRIDE [Concomitant]
     Active Substance: AMISULPRIDE
     Dosage: 400 MG, QOD
  9. AMISULPRIDE [Concomitant]
     Active Substance: AMISULPRIDE
     Dosage: 400 MG
  10. AKINETON [Concomitant]
     Active Substance: BIPERIDEN HYDROCHLORIDE
     Dosage: 2 MG
     Route: 065
  11. AKINETON [Concomitant]
     Active Substance: BIPERIDEN HYDROCHLORIDE
     Dosage: 2.5-5 MG
  12. VALIUM [Concomitant]
     Active Substance: DIAZEPAM
     Indication: Psychotic disorder
     Dosage: 5 MG
     Route: 065
  13. VALIUM [Concomitant]
     Active Substance: DIAZEPAM
     Dosage: 10 MG, UP TO THREE TABLETS DAILY
  14. OXAZEPAM [Concomitant]
     Active Substance: OXAZEPAM
     Indication: Psychotic disorder
     Dosage: 15 MG, UP TO THREE TABLETS DAILY
     Route: 065
  15. QUETIAPINE [Concomitant]
     Active Substance: QUETIAPINE
     Indication: Psychotic disorder
     Dosage: 25-50 MG TABLETS
     Route: 048
  16. QUETIAPINE [Concomitant]
     Active Substance: QUETIAPINE
     Dosage: 25 MG
     Route: 048

REACTIONS (5)
  - Oculogyric crisis [Recovered/Resolved]
  - Intellectual disability [Unknown]
  - Fear [Unknown]
  - Drug ineffective [Recovered/Resolved]
  - Sedation [Unknown]
